FAERS Safety Report 14505293 (Version 5)
Quarter: 2018Q4

REPORT INFORMATION
  Report Type: Spontaneous
  Country: HU (occurrence: HU)
  Receive Date: 20180208
  Receipt Date: 20181227
  Transmission Date: 20190204
  Serious: Yes (Other)
  Sender: FDA-Public Use
  Company Number: HU-PFIZER INC-2018053276

PATIENT
  Age: 42 Year
  Sex: Female

DRUGS (4)
  1. IBUPROFEN. [Suspect]
     Active Substance: IBUPROFEN
     Indication: ANKYLOSING SPONDYLITIS
     Dosage: UNK
     Dates: start: 2016
  2. NIMESULIDE [Suspect]
     Active Substance: NIMESULIDE
     Indication: ANKYLOSING SPONDYLITIS
     Dosage: UNK
     Dates: start: 2016
  3. AZATHIOPRIN [Concomitant]
     Active Substance: AZATHIOPRINE
     Indication: COLITIS ULCERATIVE
     Dosage: 50 MG, UNK (1X50 MG)
     Dates: start: 1999
  4. SULPHASALAZINE [Concomitant]
     Active Substance: SULFASALAZINE
     Indication: COLITIS ULCERATIVE
     Dosage: 1000 MG, UNK (2X500 MG)
     Dates: start: 1999

REACTIONS (2)
  - Condition aggravated [Unknown]
  - Colitis ulcerative [Unknown]
